FAERS Safety Report 6204207-2 (Version None)
Quarter: 2009Q2

REPORT INFORMATION
  Report Type: 
  Country: None (occurrence: None)
  Receive Date: 20090518
  Receipt Date: 20090206
  Transmission Date: 20091009
  Serious: No
  Sender: FDA-Public Use
  Company Number: WAES 0902USA01076

PATIENT
  Age: 75 Year
  Sex: Female

DRUGS (3)
  1. JANUVIA [Suspect]
     Indication: TYPE 2 DIABETES MELLITUS
     Dosage: 25 MG BID PO
     Route: 048
     Dates: start: 20090121, end: 20090203
  2. CARVEDILOL [Concomitant]
  3. GLYBURIDE [Concomitant]

REACTIONS (2)
  - HYPOGLYCAEMIA [None]
  - INAPPROPRIATE SCHEDULE OF DRUG ADMINISTRATION [None]
